FAERS Safety Report 17568490 (Version 2)
Quarter: 2020Q2

REPORT INFORMATION
  Report Type: Spontaneous
  Country: CH (occurrence: CH)
  Receive Date: 20200320
  Receipt Date: 20200430
  Transmission Date: 20200713
  Serious: Yes (Hospitalization)
  Sender: FDA-Public Use
  Company Number: CH-BIOGEN-2020BI00850170

PATIENT
  Age: 15 Year
  Sex: Female

DRUGS (7)
  1. SPINRAZA [Suspect]
     Active Substance: NUSINERSEN
     Route: 037
  2. MEOPA [Concomitant]
     Indication: PREMEDICATION
     Dosage: (NITROUS OXIDE 50% + OXYGEN 50%)
     Route: 055
     Dates: start: 20190415
  3. SPINRAZA [Suspect]
     Active Substance: NUSINERSEN
     Indication: SPINAL MUSCULAR ATROPHY
     Dosage: 4 INJECTIONS OF 12 MG (5 ML) EACH INTRATHECAL (IT)?DURING THE FIRST 2 MONTHS (LOADING DOSE)
     Route: 037
     Dates: start: 20190415
  4. SPINRAZA [Suspect]
     Active Substance: NUSINERSEN
     Route: 037
     Dates: start: 20191104
  5. EMLA [Concomitant]
     Active Substance: LIDOCAINE\PRILOCAINE
     Indication: PREMEDICATION
     Route: 003
     Dates: start: 20190415
  6. SPINRAZA [Suspect]
     Active Substance: NUSINERSEN
     Route: 037
     Dates: start: 20200302
  7. MORPHINE [Concomitant]
     Active Substance: MORPHINE
     Indication: BACK PAIN
     Dosage: PCA (PATIENT-CONTROLLED ANALGESIA) FOR 3 DAYS WAS ADMINISTERED (SMALL DOSES ADMINISTERED)
     Route: 042
     Dates: start: 201911

REACTIONS (2)
  - Acute psychosis [Recovered/Resolved]
  - Acute psychosis [Recovered/Resolved]

NARRATIVE: CASE EVENT DATE: 201911
